FAERS Safety Report 7101709-1 (Version None)
Quarter: 2010Q4

REPORT INFORMATION
  Report Type: 
  Country: None (occurrence: None)
  Receive Date: 20101115
  Receipt Date: 20101110
  Transmission Date: 20110411
  Serious: Yes (Life-Threatening, Hospitalization)
  Sender: FDA-Public Use
  Company Number: JP-NOVOPROD-318289

PATIENT
  Age: 24 Year
  Sex: Female

DRUGS (3)
  1. NOVORAPID CHU PENFILL [Suspect]
     Indication: TYPE 1 DIABETES MELLITUS
     Dosage: 2400 U, QD
     Route: 058
     Dates: start: 20100606, end: 20100606
  2. NOVORAPID CHU PENFILL [Suspect]
     Dosage: 900 U, QD
     Route: 058
     Dates: start: 20100607
  3. LANTUS [Suspect]
     Indication: TYPE 1 DIABETES MELLITUS
     Dosage: 900 U, QD
     Route: 058
     Dates: start: 20100606, end: 20100606

REACTIONS (3)
  - HYPOGLYCAEMIA [None]
  - INTENTIONAL OVERDOSE [None]
  - SUICIDE ATTEMPT [None]
